FAERS Safety Report 6372115-2 (Version None)
Quarter: 2009Q3

REPORT INFORMATION
  Report Type: 
  Country: None (occurrence: None)
  Receive Date: 20090917
  Receipt Date: 20090901
  Transmission Date: 20100115
  Serious: Yes (Other)
  Sender: FDA-Public Use
  Company Number: DSA_41633_2009

PATIENT
  Sex: Male

DRUGS (1)
  1. NITOMAN TAB [Suspect]
     Indication: TARDIVE DYSKINESIA
     Dosage: (12.5 (UNITS NOT REPORTED) BID ORAL)
     Route: 048

REACTIONS (1)
  - PSYCHOTIC DISORDER [None]
